FAERS Safety Report 9550789 (Version 2)
Quarter: 2014Q2

REPORT INFORMATION
  Report Type: Spontaneous
  Country: US (occurrence: US)
  Receive Date: 20130924
  Receipt Date: 20140402
  Transmission Date: 20141212
  Serious: No
  Sender: FDA-Public Use
  Company Number: US-SANOFI-AVENTIS-2013SA048142

PATIENT
  Age: 60 Year
  Sex: Male
  Weight: 230 kg

DRUGS (4)
  1. AUBAGIO [Suspect]
     Indication: MULTIPLE SCLEROSIS
     Route: 048
     Dates: start: 20130504
  2. TRAMADOL [Concomitant]
     Indication: PAIN IN EXTREMITY
     Dates: start: 1997
  3. BISOPROLOL [Concomitant]
     Indication: BLOOD PRESSURE
     Dates: start: 1998, end: 201304
  4. ASPIRIN [Concomitant]
     Indication: BLOOD PRESSURE
     Dates: start: 2010

REACTIONS (2)
  - Pollakiuria [Recovered/Resolved]
  - Abdominal discomfort [Recovered/Resolved]
